FAERS Safety Report 16761620 (Version 1)
Quarter: 2019Q3

REPORT INFORMATION
  Report Type: Spontaneous
  Country: AT (occurrence: AT)
  Receive Date: 20190830
  Receipt Date: 20190830
  Transmission Date: 20191005
  Serious: Yes (Life-Threatening, Other)
  Sender: FDA-Public Use
  Company Number: PHHY2019AT202140

PATIENT
  Sex: Male

DRUGS (1)
  1. GILENYA [Suspect]
     Active Substance: FINGOLIMOD HYDROCHLORIDE
     Indication: RELAPSING-REMITTING MULTIPLE SCLEROSIS
     Route: 065

REACTIONS (6)
  - Renal failure [Unknown]
  - General physical condition decreased [Unknown]
  - Atrioventricular block complete [Not Recovered/Not Resolved]
  - Dyspnoea [Unknown]
  - Multiple sclerosis relapse [Unknown]
  - Bladder dysfunction [Unknown]
